FAERS Safety Report 9459517 (Version 2)
Quarter: 2013Q4

REPORT INFORMATION
  Report Type: Spontaneous
  Country: US (occurrence: US)
  Receive Date: 20130815
  Receipt Date: 20131107
  Transmission Date: 20140711
  Serious: No
  Sender: FDA-Public Use
  Company Number: US-PFIZER INC-2013234882

PATIENT
  Age: 58 Year
  Sex: Male
  Weight: 89.34 kg

DRUGS (13)
  1. XELJANZ [Suspect]
     Indication: RHEUMATOID ARTHRITIS
     Dosage: 5 MG, 2X/DAY
     Route: 048
  2. PLAQUENIL [Concomitant]
     Dosage: 200 MG, UNK
     Route: 048
  3. AMLODIPINE [Concomitant]
     Dosage: 2.5 MG, UNK
     Route: 048
  4. ALLEGRA-D [Concomitant]
     Dosage: 12 HOUR
     Route: 048
  5. GEMFIBROZIL [Concomitant]
     Dosage: 600 MG, UNK
     Route: 048
  6. BENAZEPRIL [Concomitant]
     Dosage: 5 MG, UNK
     Route: 048
  7. NEXIUM [Concomitant]
     Dosage: 20 MG, UNK
     Route: 048
  8. VITAMIN E [Concomitant]
     Dosage: 100 UNIT, UNK
     Route: 048
  9. ST. JOHN^S WORT [Concomitant]
     Dosage: 150 MG, UNK
     Route: 048
  10. ASPIRIN ADLT [Concomitant]
     Dosage: 81 MG, UNK
     Route: 048
  11. GLUCOSAMINE [Concomitant]
     Dosage: 1000 MG, UNK
     Route: 048
  12. VITAMIN B COMPLEX [Concomitant]
     Dosage: UNK
     Route: 048
  13. ADVIL COLD + SINUS [Concomitant]
     Dosage: UNK
     Route: 048

REACTIONS (4)
  - Local swelling [Unknown]
  - Flatulence [Unknown]
  - Abdominal distension [Unknown]
  - Sinusitis [Recovered/Resolved]
